FAERS Safety Report 17121869 (Version 2)
Quarter: 2019Q4

REPORT INFORMATION
  Report Type: Spontaneous
  Country: US (occurrence: US)
  Receive Date: 20191206
  Receipt Date: 20191216
  Transmission Date: 20200122
  Serious: No
  Sender: FDA-Public Use
  Company Number: US-PFIZER INC-2019525117

PATIENT
  Sex: Female

DRUGS (1)
  1. XANAX [Suspect]
     Active Substance: ALPRAZOLAM
     Dosage: UNK

REACTIONS (5)
  - Suspected counterfeit product [Unknown]
  - Ocular discomfort [Unknown]
  - Product physical issue [Unknown]
  - Drug ineffective [Unknown]
  - Migraine [Unknown]
